FAERS Safety Report 20597368 (Version 2)
Quarter: 2022Q2

REPORT INFORMATION
  Report Type: Spontaneous
  Country: US (occurrence: US)
  Receive Date: 20220315
  Receipt Date: 20220510
  Transmission Date: 20220721
  Serious: Yes (Hospitalization, Other)
  Sender: FDA-Public Use
  Company Number: US-Hikma Pharmaceuticals-US-H14001-22-00690

PATIENT
  Age: 14 Year
  Sex: Male
  Weight: 73.3 kg

DRUGS (10)
  1. CYTARABINE [Suspect]
     Active Substance: CYTARABINE
     Indication: Acute lymphocytic leukaemia
     Route: 042
     Dates: start: 20220120, end: 20220217
  2. CYTARABINE [Suspect]
     Active Substance: CYTARABINE
     Dosage: UNKNOWN
     Route: 042
  3. MERCAPTOPURINE [Suspect]
     Active Substance: MERCAPTOPURINE
     Indication: Acute lymphocytic leukaemia
     Route: 048
     Dates: start: 20220120, end: 20220217
  4. MERCAPTOPURINE [Suspect]
     Active Substance: MERCAPTOPURINE
     Dosage: UNKNOWN
     Route: 048
  5. METHOTREXATE [Suspect]
     Active Substance: METHOTREXATE
     Indication: Acute lymphocytic leukaemia
     Route: 037
     Dates: start: 20220120
  6. RUXOLITINIB [Suspect]
     Active Substance: RUXOLITINIB
     Indication: Acute lymphocytic leukaemia
     Route: 048
     Dates: start: 20220120, end: 20220217
  7. RUXOLITINIB [Suspect]
     Active Substance: RUXOLITINIB
     Dosage: UNKNOWN
     Route: 048
  8. CYCLOPHOSPHAMIDE [Suspect]
     Active Substance: CYCLOPHOSPHAMIDE
     Indication: Acute lymphocytic leukaemia
     Route: 042
     Dates: start: 20220120, end: 20220217
  9. CYCLOPHOSPHAMIDE [Suspect]
     Active Substance: CYCLOPHOSPHAMIDE
     Dosage: UNKNOWN
     Route: 042
  10. VINCRISTINE [Suspect]
     Active Substance: VINCRISTINE
     Indication: Acute lymphocytic leukaemia
     Dosage: UNKNOWN
     Route: 065

REACTIONS (10)
  - Haematochezia [Recovered/Resolved]
  - Febrile neutropenia [Recovering/Resolving]
  - Nausea [Unknown]
  - Malaise [Recovering/Resolving]
  - Haemoglobin decreased [Unknown]
  - Epistaxis [Unknown]
  - Thrombocytopenia [Unknown]
  - Anaemia [Unknown]
  - Pyrexia [Unknown]
  - Neutropenia [Unknown]

NARRATIVE: CASE EVENT DATE: 20220201
